FAERS Safety Report 11080095 (Version 2)
Quarter: 2015Q2

REPORT INFORMATION
  Report Type: Report from Study
  Country: BE (occurrence: BE)
  Receive Date: 20150430
  Receipt Date: 20150610
  Transmission Date: 20150821
  Serious: Yes (Hospitalization)
  Sender: FDA-Public Use
  Company Number: BE-SA-2015SA053854

PATIENT
  Age: 32 Year
  Sex: Male
  Weight: 70 kg

DRUGS (36)
  1. CETIRIZINE [Concomitant]
     Active Substance: CETIRIZINE HYDROCHLORIDE
     Dosage: V5 : DAY 3  -  POST INFUSION  -  H1 ANTAGONIST
     Route: 048
     Dates: start: 20141210, end: 20141210
  2. ZANTAC [Concomitant]
     Active Substance: RANITIDINE HYDROCHLORIDE
     Dosage: V4 : DAY 2  -  PRE INFUSION AND POST INFUSION  -  H2 ANTAGONIST AND
     Route: 048
     Dates: start: 20141209, end: 20141209
  3. ZANTAC [Concomitant]
     Active Substance: RANITIDINE HYDROCHLORIDE
     Dosage: V5 : DAY 3  -  PRE INFUSION  AND POST INFUSION-  H2 ANTAGONIST
     Route: 048
     Dates: start: 20141210, end: 20141210
  4. ZANTAC [Concomitant]
     Active Substance: RANITIDINE HYDROCHLORIDE
     Dosage: V6 : DAY 4  -  PRE INFUSION  AND POST INFUSION-  H2 ANTAGONIST
     Route: 048
     Dates: start: 20141211, end: 20141211
  5. MEDROL [Concomitant]
     Active Substance: METHYLPREDNISOLONE
     Dosage: GIVEN ON DAYS:V2 : DAY 0;
     Route: 048
     Dates: start: 20141207, end: 20141207
  6. ZOVIRAX [Concomitant]
     Active Substance: ACYCLOVIR
     Dosage: V5 : DAY 3  -  PRE INFUSION AND POST INFUSION  -  ACICLOVIR OR EQUIVALENT
     Route: 048
     Dates: start: 20141210, end: 20141210
  7. POLARAMINE [Concomitant]
     Active Substance: DEXCHLORPHENIRAMINE MALEATE
     Dosage: V6 : DAY 4  -  PRE INFUSION  -  H1 ANTAGONIST
     Route: 042
     Dates: start: 20141211, end: 20141211
  8. ZANTAC [Concomitant]
     Active Substance: RANITIDINE HYDROCHLORIDE
     Dosage: V3 : DAY 1  -  PRE INFUSION AND V3 : DAY 1  -  POST INFUSION  -  H2 ANTAGONIST
     Route: 048
     Dates: start: 20141208, end: 20141208
  9. DAFALGAN [Concomitant]
     Active Substance: ACETAMINOPHEN
     Route: 048
     Dates: start: 20141212, end: 20141212
  10. POLARAMINE [Concomitant]
     Active Substance: DEXCHLORPHENIRAMINE MALEATE
     Dosage: V7 : DAY 5  -  PRE INFUSION  -  H1 ANTAGONIST
     Route: 042
     Dates: start: 20141212, end: 20141212
  11. PAROXETINE [Concomitant]
     Active Substance: PAROXETINE\PAROXETINE HYDROCHLORIDE
     Indication: DRUG THERAPY
     Route: 048
  12. CETIRIZINE [Concomitant]
     Active Substance: CETIRIZINE HYDROCHLORIDE
     Dosage: V6 : DAY 4  -  POST INFUSION  -  H1 ANTAGONIST
     Route: 048
     Dates: start: 20141211, end: 20141211
  13. MEDROL [Concomitant]
     Active Substance: METHYLPREDNISOLONE
     Dosage: V6 : DAY 4  -  PRE INFUSION
     Route: 042
     Dates: start: 20141211, end: 20141211
  14. ALEMTUZUMAB [Suspect]
     Active Substance: ALEMTUZUMAB
     Indication: RELAPSING-REMITTING MULTIPLE SCLEROSIS
     Route: 042
     Dates: start: 20141208, end: 20141212
  15. MEDROL [Concomitant]
     Active Substance: METHYLPREDNISOLONE
     Dosage: V4 : DAY 2  -  PRE INFUSION AND
     Route: 042
     Dates: start: 20141209, end: 20141209
  16. DAFALGAN [Concomitant]
     Active Substance: ACETAMINOPHEN
     Dosage: V5 : DAY 3  -  PRE INFUSION  -  NSAID / ANTIPYRETIC
     Route: 048
     Dates: start: 20141210, end: 20141210
  17. DAFALGAN [Concomitant]
     Active Substance: ACETAMINOPHEN
     Dosage: V6 : DAY 4  -  PRE INFUSION  -  NSAID / ANTIPYRETIC
     Route: 048
     Dates: start: 20141211, end: 20141211
  18. ZOVIRAX [Concomitant]
     Active Substance: ACYCLOVIR
     Dosage: V6 : DAY 4  -  PRE INFUSION  AND POST INFUSION-  ACICLOVIR OR EQUIVALENT
     Route: 048
     Dates: start: 20141211, end: 20141211
  19. CETIRIZINE [Concomitant]
     Active Substance: CETIRIZINE HYDROCHLORIDE
     Dosage: GIVEN ON: V2:DAY0;
     Route: 048
     Dates: start: 20141207, end: 20141207
  20. CETIRIZINE [Concomitant]
     Active Substance: CETIRIZINE HYDROCHLORIDE
     Route: 048
     Dates: start: 20141208, end: 20141208
  21. CETIRIZINE [Concomitant]
     Active Substance: CETIRIZINE HYDROCHLORIDE
     Dosage: V7 : DAY 5  -  POST INFUSION
     Route: 048
     Dates: start: 20141212, end: 20141212
  22. POLARAMINE [Concomitant]
     Active Substance: DEXCHLORPHENIRAMINE MALEATE
     Route: 042
     Dates: start: 20141208, end: 20141208
  23. ALPRAZOLAM. [Concomitant]
     Active Substance: ALPRAZOLAM
     Indication: DRUG THERAPY
     Route: 048
  24. ZANTAC [Concomitant]
     Active Substance: RANITIDINE HYDROCHLORIDE
     Route: 048
     Dates: start: 20141207, end: 20141207
  25. ZANTAC [Concomitant]
     Active Substance: RANITIDINE HYDROCHLORIDE
     Dosage: V7 : DAY 5  -  PRE INFUSION AND POST INFUSION -  H2 ANTAGONIST
     Route: 048
     Dates: start: 20141212, end: 20141212
  26. DAFALGAN [Concomitant]
     Active Substance: ACETAMINOPHEN
     Dosage: V4 : DAY 2  -  PRE INFUSION  -  NSAID / ANTIPYRETIC AND
     Route: 048
     Dates: start: 20141209, end: 20141209
  27. ZOVIRAX [Concomitant]
     Active Substance: ACYCLOVIR
     Dosage: V7 : DAY 5  -  PRE INFUSION AND POST INFUSION -  ACICLOVIR OR EQUIVALENT
     Route: 048
     Dates: start: 20141212, end: 20141212
  28. POLARAMINE [Concomitant]
     Active Substance: DEXCHLORPHENIRAMINE MALEATE
     Route: 042
     Dates: start: 20141209, end: 20141209
  29. DAFALGAN [Concomitant]
     Active Substance: ACETAMINOPHEN
     Dosage: V3 : DAY 1  -  PRE INFUSION
     Route: 048
     Dates: start: 20141208, end: 20141208
  30. ZOVIRAX [Concomitant]
     Active Substance: ACYCLOVIR
     Dosage: V4 : DAY 2  -  PRE INFUSION AND  POST INFUSION -  ACICLOVIR OR EQUIVALENT AND
     Route: 048
     Dates: start: 20141209, end: 20141209
  31. CETIRIZINE [Concomitant]
     Active Substance: CETIRIZINE HYDROCHLORIDE
     Dosage: V4 : DAY 2  -  POST INFUSION  -  H1 ANTAGONIST
     Route: 048
     Dates: start: 20141209, end: 20141209
  32. MEDROL [Concomitant]
     Active Substance: METHYLPREDNISOLONE
     Route: 042
     Dates: start: 20141208, end: 20141208
  33. MEDROL [Concomitant]
     Active Substance: METHYLPREDNISOLONE
     Dosage: V5 : DAY 3  -  PRE INFUSION
     Route: 042
     Dates: start: 20141210, end: 20141210
  34. MEDROL [Concomitant]
     Active Substance: METHYLPREDNISOLONE
     Dosage: V7 : DAY 5  -  PRE INFUSION
     Route: 042
     Dates: start: 20141212, end: 20141212
  35. ZOVIRAX [Concomitant]
     Active Substance: ACYCLOVIR
     Route: 048
     Dates: start: 20141208, end: 20141208
  36. POLARAMINE [Concomitant]
     Active Substance: DEXCHLORPHENIRAMINE MALEATE
     Dosage: V5 : DAY 3  -  PRE INFUSION  -  H1 ANTAGONIST
     Route: 042
     Dates: start: 20141210, end: 20141210

REACTIONS (1)
  - Varicella zoster virus infection [Recovered/Resolved]

NARRATIVE: CASE EVENT DATE: 20150417
